FAERS Safety Report 7629548-3 (Version None)
Quarter: 2011Q3

REPORT INFORMATION
  Report Type: 
  Country: None (occurrence: None)
  Receive Date: 20110722
  Receipt Date: 20110517
  Transmission Date: 20111222
  Serious: No
  Sender: FDA-Public Use
  Company Number: US-BAYER-2011-042885

PATIENT
  Age: 24 Year
  Sex: Female

DRUGS (4)
  1. BETASERON [Suspect]
     Indication: MULTIPLE SCLEROSIS
     Dosage: 0.25 ML
     Route: 058
  2. BETASERON [Suspect]
     Dosage: 1 ML, QOD
     Route: 058
  3. BETASERON [Suspect]
     Dosage: 0.5 ML
     Route: 058
  4. BETASERON [Suspect]
     Dosage: 0.75 ML
     Route: 058

REACTIONS (2)
  - INJECTION SITE ERYTHEMA [None]
  - INJECTION SITE PRURITUS [None]
